FAERS Safety Report 9095757 (Version 1)
Quarter: 2013Q1

REPORT INFORMATION
  Report Type: Spontaneous
  Country: DK (occurrence: None)
  Receive Date: 20130124
  Receipt Date: 20130124
  Transmission Date: 20140127
  Serious: Yes (Life-Threatening, Disabling)
  Sender: FDA-Public Use
  Company Number: 2013MA000578

PATIENT
  Age: 43 Year
  Sex: Female

DRUGS (5)
  1. GABAPENTIN [Suspect]
     Indication: NERVE BLOCK
     Route: 048
     Dates: start: 20091101
  2. LEVOTHYROXINE SODIUM [Concomitant]
  3. PARACETAMOL [Concomitant]
  4. CODEINE PHOSPHATE [Concomitant]
  5. DICLOFENAC [Concomitant]

REACTIONS (5)
  - Aggression [None]
  - Mental disorder [None]
  - Suicidal ideation [None]
  - Depression [None]
  - Mental disorder [None]
